FAERS Safety Report 9882505 (Version 2)
Quarter: 2014Q1

REPORT INFORMATION
  Report Type: Report from Study
  Country: US (occurrence: US)
  Receive Date: 20140207
  Receipt Date: 20140211
  Transmission Date: 20141002
  Serious: Yes (Death, Hospitalization, Other)
  Sender: FDA-Public Use
  Company Number: US-ABBVIE-14P-163-1198340-00

PATIENT
  Age: 62 Year
  Sex: Male
  Weight: 68.1 kg

DRUGS (12)
  1. HUMIRA [Suspect]
     Indication: RHEUMATOID ARTHRITIS
     Dates: start: 20090921, end: 20101027
  2. PEPCID [Concomitant]
     Indication: PRODUCT USED FOR UNKNOWN INDICATION
  3. CLONAZEPAM [Concomitant]
     Indication: ANXIETY
  4. FENTANYL [Concomitant]
     Indication: PAIN
  5. GABAPENTIN [Concomitant]
     Indication: FIBROMYALGIA
  6. OXYCODONE [Concomitant]
     Indication: PAIN
  7. MIRALAX [Concomitant]
     Indication: PRODUCT USED FOR UNKNOWN INDICATION
  8. SENNA [Concomitant]
     Indication: PRODUCT USED FOR UNKNOWN INDICATION
  9. MORPHINE [Concomitant]
     Indication: PAIN
  10. HALOPERIDOL [Concomitant]
     Indication: AGITATION
  11. LORAZEPAM [Concomitant]
     Indication: ANXIETY
  12. ATROPINE [Concomitant]
     Indication: SECRETION DISCHARGE

REACTIONS (13)
  - Pancreatic carcinoma [Fatal]
  - Acute respiratory failure [Fatal]
  - Lymphadenopathy [Fatal]
  - Abdominal distension [Fatal]
  - Dyspnoea [Fatal]
  - Abdominal tenderness [Fatal]
  - Coronary arterial stent insertion [Unknown]
  - Stent placement [Unknown]
  - Myocardial infarction [Recovered/Resolved]
  - Nerve compression [Unknown]
  - Carpal tunnel syndrome [Unknown]
  - Nerve compression [Unknown]
  - Umbilical hernia [Recovered/Resolved]
